FAERS Safety Report 11193094 (Version 1)
Quarter: 2015Q2

REPORT INFORMATION
  Report Type: Spontaneous
  Country: US (occurrence: US)
  Receive Date: 20150616
  Receipt Date: 20150616
  Transmission Date: 20150821
  Serious: No
  Sender: FDA-Public Use
  Company Number: US-TAKEDA-2014MPI002056

PATIENT
  Sex: Male

DRUGS (3)
  1. VELCADE [Suspect]
     Active Substance: BORTEZOMIB
     Indication: PLASMA CELL MYELOMA
     Dosage: TWICE A WEEK FOR 3 WEEKS AND 1 WEEK OFF
     Route: 058
     Dates: start: 20140102, end: 20140722
  2. LENALIDOMIDE [Concomitant]
     Active Substance: LENALIDOMIDE
     Dosage: UNK
  3. DEXAMETHASONE. [Concomitant]
     Active Substance: DEXAMETHASONE
     Dosage: 4 MG, 1/WEEK

REACTIONS (3)
  - Nausea [Not Recovered/Not Resolved]
  - Back pain [Unknown]
  - Fatigue [Unknown]
